FAERS Safety Report 13610464 (Version 4)
Quarter: 2017Q3

REPORT INFORMATION
  Report Type: Spontaneous
  Country: US (occurrence: US)
  Receive Date: 20170605
  Receipt Date: 20170824
  Transmission Date: 20171127
  Serious: Yes (Hospitalization, Other)
  Sender: FDA-Public Use
  Company Number: US-GLAXOSMITHKLINE-US2017GSK084998

PATIENT
  Sex: Female

DRUGS (1)
  1. ANORO ELLIPTA [Suspect]
     Active Substance: UMECLIDINIUM BROMIDE\VILANTEROL TRIFENATATE
     Indication: CHRONIC OBSTRUCTIVE PULMONARY DISEASE
     Dosage: UNK, U
     Dates: start: 2016

REACTIONS (14)
  - Concussion [Unknown]
  - Drug dose omission [Unknown]
  - Pain [Not Recovered/Not Resolved]
  - Fall [Unknown]
  - Head injury [Unknown]
  - Rehabilitation therapy [Unknown]
  - Respiratory failure [Unknown]
  - Patient-device incompatibility [Unknown]
  - Device breakage [Unknown]
  - Amnesia [Unknown]
  - Musculoskeletal complication associated with device [Unknown]
  - Hip fracture [Unknown]
  - Hypersensitivity [Unknown]
  - Hip arthroplasty [Unknown]

NARRATIVE: CASE EVENT DATE: 2017
